FAERS Safety Report 5528673-0 (Version None)
Quarter: 2007Q4

REPORT INFORMATION
  Report Type: 
  Country: None (occurrence: None)
  Receive Date: 20071129
  Receipt Date: 20071127
  Transmission Date: 20080405
  Serious: Yes (Death, Congenital Anomaly, Other)
  Sender: FDA-Public Use
  Company Number: PHBS2007NL19940

PATIENT

DRUGS (1)
  1. TERBINAFINE HYDROCHLORIDE [Suspect]
     Dosage: MATERNAL DOSE 250 MG
     Route: 064
     Dates: start: 20070101

REACTIONS (4)
  - DEATH NEONATAL [None]
  - DRUG EXPOSURE BEFORE PREGNANCY [None]
  - LIMB MALFORMATION [None]
  - PREMATURE BABY [None]
